FAERS Safety Report 8813078 (Version 1)
Quarter: 2012Q4

REPORT INFORMATION
  Report Type: 
  Country: US (occurrence: US)
  Receive Date: 20120927
  Receipt Date: 20120927
  Transmission Date: 20130627
  Serious: Yes (Hospitalization, Other)
  Sender: FDA-Public Use
  Company Number: US-009507513-1203USA01087

PATIENT

DRUGS (3)
  1. FOSAMAX [Suspect]
     Indication: OSTEOPOROSIS
     Route: 048
     Dates: start: 1995, end: 201102
  2. FOSAMAX [Suspect]
     Indication: OSTEOPENIA
  3. FOSAMAX [Suspect]

REACTIONS (10)
  - Femoral neck fracture [Unknown]
  - Low turnover osteopathy [Unknown]
  - Fall [Unknown]
  - Avulsion fracture [Unknown]
  - Sciatica [Unknown]
  - Cardiomegaly [Unknown]
  - Induration [Unknown]
  - Open reduction of fracture [Unknown]
  - Cholecystectomy [Unknown]
  - Hyperlipidaemia [Unknown]
